FAERS Safety Report 5946401-1 (Version None)
Quarter: 2008Q4

REPORT INFORMATION
  Report Type: 
  Country: None (occurrence: None)
  Receive Date: 20081110
  Receipt Date: 20081103
  Transmission Date: 20090506
  Serious: Yes (Other)
  Sender: FDA-Public Use
  Company Number: BR-WYE-H06640608

PATIENT
  Sex: Male
  Weight: 71.5 kg

DRUGS (6)
  1. RAPAMUNE [Suspect]
     Indication: PROPHYLAXIS AGAINST TRANSPLANT REJECTION
     Route: 048
     Dates: start: 20081021, end: 20081030
  2. ACETYLSALICYLIC ACID SRT [Concomitant]
     Indication: THROMBOSIS PROPHYLAXIS
     Route: 048
     Dates: start: 20081023
  3. PREDNISONE TAB [Concomitant]
     Indication: IMMUNOSUPPRESSION
     Route: 048
     Dates: start: 20081021
  4. RANITIDINE [Concomitant]
     Indication: PROPHYLAXIS AGAINST GASTROINTESTINAL ULCER
     Route: 048
     Dates: start: 20081021
  5. SULFAMETHOXAZOLE AND TRIMETHOPRIM [Concomitant]
     Indication: INFECTION PROPHYLAXIS
     Dosage: 400/80MG ONCE DAILY
     Route: 048
     Dates: start: 20081021
  6. TACROLIMUS [Concomitant]
     Indication: IMMUNOSUPPRESSION
     Route: 048
     Dates: start: 20081021

REACTIONS (1)
  - URINARY FISTULA [None]
